FAERS Safety Report 16697840 (Version 1)
Quarter: 2019Q3

REPORT INFORMATION
  Report Type: Spontaneous
  Country: RO (occurrence: RO)
  Receive Date: 20190813
  Receipt Date: 20190813
  Transmission Date: 20191004
  Serious: Yes (Other)
  Sender: FDA-Public Use
  Company Number: RO-PFIZER INC-2019342650

PATIENT
  Age: 52 Year
  Sex: Male

DRUGS (9)
  1. METHYLPREDNISOLONE. [Suspect]
     Active Substance: METHYLPREDNISOLONE
     Indication: ANKYLOSING SPONDYLITIS
     Dosage: 16 MG, DAILY
     Route: 048
     Dates: start: 20180124
  2. RISEDRONIC ACID [Concomitant]
     Active Substance: RISEDRONIC ACID
     Indication: OSTEOPOROSIS
     Dosage: 75 MG, ALTERNATE DAY
     Route: 048
     Dates: start: 20140212
  3. METHYLPREDNISOLONE. [Suspect]
     Active Substance: METHYLPREDNISOLONE
     Indication: ARTHRITIS
  4. URSODEOXYCHOLIC ACID [Concomitant]
     Active Substance: URSODIOL
     Indication: CHOLESTASIS
     Dosage: 500 MG, DAILY
     Route: 048
     Dates: start: 20161012
  5. DIOSMIN [Concomitant]
     Active Substance: DIOSMIN
     Indication: THROMBOPHLEBITIS
     Dosage: 500 MG, ALTERNATE DAY
     Route: 048
     Dates: start: 20150805
  6. SECUKINUMAB. [Suspect]
     Active Substance: SECUKINUMAB
     Indication: ANKYLOSING SPONDYLITIS
     Dosage: 150 MG, MONTHLY
     Route: 058
     Dates: start: 20181128
  7. METHYLPREDNISOLONE. [Suspect]
     Active Substance: METHYLPREDNISOLONE
     Indication: ASTHMA
  8. SECUKINUMAB. [Suspect]
     Active Substance: SECUKINUMAB
     Indication: ARTHRITIS
  9. ALFACALCIDOL [Concomitant]
     Active Substance: ALFACALCIDOL
     Indication: OSTEOPOROSIS
     Dosage: 0.5 UG, ALTERNATE DAY
     Route: 048
     Dates: start: 20101119

REACTIONS (4)
  - Cardiac failure chronic [Not Recovered/Not Resolved]
  - Dyspnoea [Not Recovered/Not Resolved]
  - Myocardial ischaemia [Not Recovered/Not Resolved]
  - Arteriosclerosis [Not Recovered/Not Resolved]

NARRATIVE: CASE EVENT DATE: 20190418
